FAERS Safety Report 5689417-5 (Version None)
Quarter: 2008Q1

REPORT INFORMATION
  Report Type: 
  Country: None (occurrence: None)
  Receive Date: 20080328
  Receipt Date: 20080312
  Transmission Date: 20080703
  Serious: Yes (Hospitalization, Other)
  Sender: FDA-Public Use
  Company Number: 2008SP000449

PATIENT
  Age: 59 Year
  Sex: Male

DRUGS (1)
  1. CORICIDIN [Suspect]
     Indication: RHINORRHOEA
     Dosage: 1 DF; BID; PO
     Route: 048
     Dates: start: 20071230

REACTIONS (3)
  - BLOOD PRESSURE DECREASED [None]
  - LOSS OF CONSCIOUSNESS [None]
  - PHARMACEUTICAL PRODUCT COMPLAINT [None]
